FAERS Safety Report 4581607-8 (Version None)
Quarter: 2005Q1

REPORT INFORMATION
  Report Type: 
  Country: None (occurrence: None)
  Receive Date: 20050214
  Receipt Date: 20041201
  Transmission Date: 20050727
  Serious: No
  Sender: FDA-Public Use
  Company Number: US-GLAXOSMITHKLINE-A0535744A

PATIENT
  Age: 35 Year
  Sex: Female

DRUGS (5)
  1. LAMICTAL [Suspect]
     Indication: EPILEPSY
     Dosage: 200MG THREE TIMES PER DAY
     Route: 048
     Dates: start: 20000101
  2. ZOLOFT [Concomitant]
  3. CLARITIN [Concomitant]
  4. ATIVAN [Concomitant]
  5. PREVACID [Concomitant]

REACTIONS (2)
  - MEMORY IMPAIRMENT [None]
  - THINKING ABNORMAL [None]
